FAERS Safety Report 11142892 (Version 3)
Quarter: 2015Q3

REPORT INFORMATION
  Report Type: Spontaneous
  Country: IT (occurrence: IT)
  Receive Date: 20150525
  Receipt Date: 20150707
  Transmission Date: 20151125
  Serious: Yes (Death, Hospitalization, Other)
  Sender: FDA-Public Use
  Company Number: IT-ROCHE-1583054

PATIENT
  Age: 62 Year
  Sex: Male

DRUGS (3)
  1. SOLDESAM [Concomitant]
     Active Substance: DEXAMETHASONE
     Dosage: 4 MG/ML-3 X 1 ML VIALS
     Route: 042
  2. AVASTIN [Suspect]
     Active Substance: BEVACIZUMAB
     Indication: GLIOBLASTOMA MULTIFORME
     Dosage: 1 X 400 MG VIAL
     Route: 041
     Dates: start: 20150204, end: 20150429
  3. DELTACORTENE [Concomitant]
     Active Substance: PREDNISONE
     Indication: GLIOBLASTOMA MULTIFORME
     Dosage: 25 MG TABLETS, 10 TABLETS
     Route: 048

REACTIONS (3)
  - Embolism [Unknown]
  - Thrombocytopenia [Unknown]
  - Pancreatitis acute [Fatal]

NARRATIVE: CASE EVENT DATE: 20150517
